FAERS Safety Report 4752388-X (Version None)
Quarter: 2005Q3

REPORT INFORMATION
  Report Type: 
  Country: None (occurrence: None)
  Receive Date: 20050823
  Receipt Date: 20050818
  Transmission Date: 20060218
  Serious: Yes (Other)
  Sender: FDA-Public Use
  Company Number: 200510407BYL

PATIENT

DRUGS (4)
  1. CIPROFLAXACIN [Suspect]
  2. HYPNOTICS [Concomitant]
  3. SEDATIVES [Concomitant]
  4. ANTIANXIETICS [Concomitant]

REACTIONS (2)
  - LOSS OF CONSCIOUSNESS [None]
  - SOMNOLENCE [None]
